FAERS Safety Report 6618307-6 (Version None)
Quarter: 2010Q1

REPORT INFORMATION
  Report Type: 
  Country: None (occurrence: None)
  Receive Date: 20100308
  Receipt Date: 20100226
  Transmission Date: 20100710
  Serious: Yes (Other)
  Sender: FDA-Public Use
  Company Number: FR-ABBOTT-09P-056-0612095-00

PATIENT
  Sex: Male

DRUGS (2)
  1. LIPANTHYL [Suspect]
     Indication: HYPERCHOLESTEROLAEMIA
     Route: 048
     Dates: end: 20091214
  2. LIPANTHYL [Suspect]
     Dates: start: 20091214

REACTIONS (1)
  - OVERDOSE [None]
